FAERS Safety Report 8275369-0 (Version None)
Quarter: 2012Q2

REPORT INFORMATION
  Report Type: 
  Country: None (occurrence: None)
  Receive Date: 20120411
  Receipt Date: 20120403
  Transmission Date: 20120825
  Serious: Yes (Hospitalization)
  Sender: FDA-Public Use
  Company Number: US-BAYER-2012-033581

PATIENT
  Age: 51 Year
  Sex: Female

DRUGS (6)
  1. PROTONIX [Concomitant]
     Dosage: 40 MG, QD
     Route: 048
  2. CELEBREX [Concomitant]
     Dosage: 200 MG, QD
     Route: 048
  3. YASMIN [Suspect]
  4. VITAMIN TAB [Concomitant]
  5. QUININE SULFATE [Concomitant]
     Dosage: 324 MG, UNK
     Route: 048
  6. MOTRIN [Concomitant]

REACTIONS (1)
  - EMBOLIC STROKE [None]
